FAERS Safety Report 25900332 (Version 1)
Quarter: 2025Q4

REPORT INFORMATION
  Report Type: Spontaneous
  Country: US (occurrence: None)
  Receive Date: 20251008
  Receipt Date: 20251008
  Transmission Date: 20260118
  Serious: Yes (Other)
  Sender: FDA-CTU
  Company Number: None

PATIENT
  Age: 68 Year
  Sex: Male

DRUGS (2)
  1. ENBREL [Suspect]
     Active Substance: ETANERCEPT
     Indication: Rheumatoid arthritis
     Dosage: FREQUENCY : WEEKLY;?
  2. PREDNISONE [Suspect]
     Active Substance: PREDNISONE

REACTIONS (3)
  - Rheumatoid arthritis [None]
  - Basal cell carcinoma [None]
  - Wrong technique in product usage process [None]
